FAERS Safety Report 12572428 (Version 2)
Quarter: 2016Q3

REPORT INFORMATION
  Report Type: Report from Study
  Country: CA (occurrence: CA)
  Receive Date: 20160719
  Receipt Date: 20160823
  Transmission Date: 20161109
  Serious: Yes (Other)
  Sender: FDA-Public Use
  Company Number: CA-GILEAD-2016-0224088

PATIENT
  Age: 47 Year
  Sex: Female

DRUGS (10)
  1. SOFOSBUVIR [Suspect]
     Active Substance: SOFOSBUVIR
     Indication: CHRONIC HEPATITIS C
     Dosage: 400 MG, UNK
     Route: 048
     Dates: start: 20160527
  2. FLOVENT [Concomitant]
     Active Substance: FLUTICASONE PROPIONATE
  3. LORATADINE. [Concomitant]
     Active Substance: LORATADINE
  4. NAPROXEN. [Concomitant]
     Active Substance: NAPROXEN
  5. IBAVYR [Suspect]
     Active Substance: RIBAVIRIN
     Indication: CHRONIC HEPATITIS C
     Dosage: 1200 MG, UNK
     Route: 048
     Dates: start: 20160527
  6. TYLENOL EXTRA STRENGTH [Concomitant]
     Active Substance: ACETAMINOPHEN
  7. EPINEPHRINE. [Concomitant]
     Active Substance: EPINEPHRINE
  8. SERTRALINE [Concomitant]
     Active Substance: SERTRALINE HYDROCHLORIDE
     Dosage: UNK
  9. ELTROXIN [Concomitant]
     Active Substance: LEVOTHYROXINE
  10. VENTOLIN [Concomitant]
     Active Substance: ALBUTEROL SULFATE

REACTIONS (6)
  - Sputum discoloured [Unknown]
  - Bacterial infection [Unknown]
  - Pyrexia [Unknown]
  - Oropharyngeal pain [Unknown]
  - Pulmonary congestion [Unknown]
  - Cough [Unknown]
